FAERS Safety Report 4633379-6 (Version None)
Quarter: 2005Q2

REPORT INFORMATION
  Report Type: 
  Country: None (occurrence: None)
  Receive Date: 20050412
  Receipt Date: 20050317
  Transmission Date: 20051028
  Serious: Yes (Hospitalization)
  Sender: FDA-Public Use
  Company Number: FR-MERCK-0503FRA00080

PATIENT
  Age: 74 Year
  Sex: Male

DRUGS (7)
  1. ZOCOR [Suspect]
     Indication: HYPERCHOLESTEROLAEMIA
     Route: 048
     Dates: start: 20000101, end: 20050129
  2. MOLSIDOMINE [Concomitant]
     Indication: CORONARY ARTERY DISEASE
     Route: 048
  3. NITROGLYCERIN [Concomitant]
     Indication: ANGINA PECTORIS
     Route: 061
  4. DILTIAZEM HYDROCHLORIDE [Concomitant]
     Indication: ANGINA PECTORIS
     Route: 048
     Dates: start: 19980501, end: 20050101
  5. ASPIRIN [Concomitant]
     Indication: CORONARY ARTERY DISEASE
     Route: 048
  6. FUROSEMIDE [Concomitant]
     Indication: HYPERTENSION
     Route: 048
  7. RAMIPRIL [Concomitant]
     Indication: HYPERTENSION
     Route: 048

REACTIONS (2)
  - LUNG INFECTION [None]
  - RHABDOMYOLYSIS [None]
